FAERS Safety Report 20956316 (Version 1)
Quarter: 2022Q2

REPORT INFORMATION
  Report Type: Report from Study
  Country: GR (occurrence: GR)
  Receive Date: 20220614
  Receipt Date: 20220614
  Transmission Date: 20220721
  Serious: Yes (Other)
  Sender: FDA-Public Use
  Company Number: GR-PFIZER INC-202200828624

PATIENT
  Age: 69 Year
  Sex: Female

DRUGS (4)
  1. METHYLPREDNISOLONE [Suspect]
     Active Substance: METHYLPREDNISOLONE
     Indication: Pemphigoid
     Dosage: TAPERING DOSE UNK, DAILY
     Route: 048
  2. METHOTREXATE SODIUM [Concomitant]
     Active Substance: METHOTREXATE SODIUM
     Indication: Pemphigoid
     Dosage: UNK, WEEKLY
     Route: 048
  3. MOMETASONE FUROATE [Concomitant]
     Active Substance: MOMETASONE FUROATE
     Route: 061
  4. FOLIC ACID [Concomitant]
     Active Substance: FOLIC ACID
     Dosage: 10 MG, AFTER MTX INITIATED
     Route: 048

REACTIONS (1)
  - Respiratory tract infection [Unknown]
